FAERS Safety Report 7339869-X (Version None)
Quarter: 2011Q1

REPORT INFORMATION
  Report Type: 
  Country: None (occurrence: None)
  Receive Date: 20110309
  Receipt Date: 20110222
  Transmission Date: 20110831
  Serious: Yes (Other)
  Sender: FDA-Public Use
  Company Number: US-BAYER-201039113NA

PATIENT
  Sex: Female

DRUGS (1)
  1. YASMIN [Suspect]
     Indication: PRODUCT USED FOR UNKNOWN INDICATION
     Dosage: AS USED DOSE: O
     Route: 048
     Dates: start: 20040401

REACTIONS (6)
  - CHOLELITHIASIS [None]
  - VOMITING [None]
  - MUSCULOSKELETAL PAIN [None]
  - CHOLECYSTITIS [None]
  - NAUSEA [None]
  - DYSPEPSIA [None]
